FAERS Safety Report 10786478 (Version 1)
Quarter: 2015Q1

REPORT INFORMATION
  Report Type: Spontaneous
  Country: US (occurrence: US)
  Receive Date: 20150211
  Receipt Date: 20150211
  Transmission Date: 20150721
  Serious: No
  Sender: FDA-Public Use
  Company Number: US-GLAXOSMITHKLINE-A1086086A

PATIENT

DRUGS (1)
  1. ROPINIROLE TABLETS [Suspect]
     Active Substance: ROPINIROLE
     Indication: RESTLESS LEGS SYNDROME
     Route: 048

REACTIONS (3)
  - Middle insomnia [None]
  - Drug ineffective [Unknown]
  - Insomnia [Unknown]
